FAERS Safety Report 9462077 (Version 1)
Quarter: 2013Q3

REPORT INFORMATION
  Report Type: Report from Study
  Country: JP (occurrence: JP)
  Receive Date: 20130816
  Receipt Date: 20130816
  Transmission Date: 20140515
  Serious: Yes (Disabling)
  Sender: FDA-Public Use
  Company Number: JP-ALLERGAN-1312132US

PATIENT
  Age: 75 Year
  Sex: Male

DRUGS (3)
  1. BIMATOPROST 0.03% SOL-EYE (9106X) [Suspect]
     Indication: OPEN ANGLE GLAUCOMA
     Dosage: 1 DROP IN EACH EYE AT NIGHT
     Route: 047
     Dates: start: 20120206
  2. ALPHAGAN [Suspect]
     Indication: OPEN ANGLE GLAUCOMA
     Dosage: 1 DROP TWICE A DAY IN THE LEFT EYE
     Route: 047
     Dates: start: 20130131
  3. TRUSOPT [Concomitant]
     Indication: PRODUCT USED FOR UNKNOWN INDICATION
     Dosage: UNK
     Dates: start: 20110629

REACTIONS (2)
  - Visual field defect [Unknown]
  - Intraocular pressure increased [Recovered/Resolved]
